FAERS Safety Report 5038712-1 (Version None)
Quarter: 2006Q2

REPORT INFORMATION
  Report Type: 
  Country: None (occurrence: None)
  Receive Date: 20060629
  Receipt Date: 20060522
  Transmission Date: 20061013
  Serious: No
  Sender: FDA-Public Use
  Company Number: US-BRISTOL-MYERS SQUIBB COMPANY-13384672

PATIENT
  Age: 45 Year
  Sex: Male
  Weight: 70 kg

DRUGS (3)
  1. REYATAZ [Suspect]
     Indication: HIV TEST POSITIVE
     Route: 048
     Dates: start: 20060301
  2. VIREAD [Concomitant]
  3. NORVIR [Concomitant]

REACTIONS (2)
  - ALOPECIA [None]
  - PRURITUS [None]
